FAERS Safety Report 19059210 (Version 2)
Quarter: 2021Q1

REPORT INFORMATION
  Report Type: Report from Study
  Country: FR (occurrence: FR)
  Receive Date: 20210325
  Receipt Date: 20210330
  Transmission Date: 20210420
  Serious: Yes (Death, Life-Threatening, Hospitalization, Other)
  Sender: FDA-Public Use
  Company Number: FR-BRISTOL-MYERS SQUIBB COMPANY-BMS-2020-106204

PATIENT
  Age: 63 Year
  Sex: Female
  Weight: 65 kg

DRUGS (5)
  1. FENTANYL. [Concomitant]
     Active Substance: FENTANYL
     Indication: PAIN
     Dosage: 400 MICROGRAM FOR 24 HRS
     Route: 060
     Dates: start: 20201117
  2. CIPROFLOXACINE [CIPROFLOXACIN] [Concomitant]
     Active Substance: CIPROFLOXACIN
     Indication: URINARY TRACT INFECTION
     Dosage: 500 MILLIGRAM FOR 24 HOURS
     Route: 048
     Dates: start: 20201117
  3. APIXABAN [Suspect]
     Active Substance: APIXABAN
     Indication: EMBOLISM VENOUS
     Dosage: 5 MG TWICE A DAY OR 2.5 MG TWICE A DAY
     Route: 048
     Dates: start: 20191220, end: 20201124
  4. PREDNISONE. [Concomitant]
     Active Substance: PREDNISONE
     Indication: PAIN
     Dosage: 80 MILLIGRAM PER 24 HRS
     Route: 048
     Dates: start: 20201117
  5. PANTOPRAZOLE [Concomitant]
     Active Substance: PANTOPRAZOLE
     Indication: GASTROOESOPHAGEAL REFLUX DISEASE
     Dosage: 20 MILLIGRAM FOR 24 HOURS
     Route: 048
     Dates: start: 20201028

REACTIONS (3)
  - Acute respiratory failure [Fatal]
  - Malignant neoplasm progression [Fatal]
  - COVID-19 [Fatal]

NARRATIVE: CASE EVENT DATE: 20201123
